FAERS Safety Report 12315664 (Version 1)
Quarter: 2016Q2

REPORT INFORMATION
  Report Type: Other
  Country: DE (occurrence: DE)
  Receive Date: 20160428
  Receipt Date: 20160428
  Transmission Date: 20160815
  Serious: Yes (Other)
  Sender: FDA-Public Use
  Company Number: DE-MYLANLABS-2016M1016438

PATIENT

DRUGS (1)
  1. QUETIAPINE MYLAN [Suspect]
     Active Substance: QUETIAPINE
     Dosage: UNK

REACTIONS (5)
  - Dizziness [Unknown]
  - Fatigue [Unknown]
  - Palpitations [Unknown]
  - Syncope [Unknown]
  - Sudden onset of sleep [Unknown]
